FAERS Safety Report 20512365 (Version 1)
Quarter: 2022Q1

REPORT INFORMATION
  Report Type: Spontaneous
  Country: CA (occurrence: CA)
  Receive Date: 20220224
  Receipt Date: 20220224
  Transmission Date: 20220423
  Serious: Yes (Other)
  Sender: FDA-Public Use
  Company Number: CA-PFIZER INC-202200274501

PATIENT
  Age: 81 Year
  Sex: Male

DRUGS (1)
  1. HEPARIN SODIUM [Suspect]
     Active Substance: HEPARIN SODIUM
     Dosage: 1000 MG, WEEKLY
     Route: 042
     Dates: start: 202111

REACTIONS (2)
  - Drug hypersensitivity [Not Recovered/Not Resolved]
  - Loss of consciousness [Not Recovered/Not Resolved]
